FAERS Safety Report 11176498 (Version 1)
Quarter: 2015Q2

REPORT INFORMATION
  Report Type: Spontaneous
  Country: GB (occurrence: GB)
  Receive Date: 20150610
  Receipt Date: 20150610
  Transmission Date: 20150821
  Serious: Yes (Death, Life-Threatening)
  Sender: FDA-Public Use
  Company Number: GB-TEVA-567427ACC

PATIENT
  Sex: Female

DRUGS (1)
  1. TRAMADOL [Suspect]
     Active Substance: TRAMADOL

REACTIONS (4)
  - Pain [Fatal]
  - Respiratory failure [Fatal]
  - Somnolence [Fatal]
  - Faecal incontinence [Fatal]
